FAERS Safety Report 4661046-1 (Version None)
Quarter: 2005Q2

REPORT INFORMATION
  Report Type: 
  Country: None (occurrence: None)
  Receive Date: 20050511
  Receipt Date: 20050430
  Transmission Date: 20051028
  Serious: Yes (Hospitalization)
  Sender: FDA-Public Use
  Company Number: 163-20785-04050355

PATIENT
  Age: 61 Year
  Sex: Female
  Weight: 67.1 kg

DRUGS (35)
  1. THALOMID [Suspect]
     Indication: MULTIPLE MYELOMA
     Dosage: 100 MG, QHS, ORAL
     Route: 048
     Dates: start: 20050112, end: 20050121
  2. DEXAMETHASONE [Suspect]
     Indication: MULTIPLE MYELOMA
     Dosage: 200 MG, QD, ORAL
     Route: 048
     Dates: start: 20041004, end: 20050121
  3. MELPHALAN (MELPHALAN) (UNKNOWN) [Suspect]
     Indication: MULTIPLE MYELOMA
     Dosage: 332 MG, QD, INTRAVENOUS
     Route: 042
     Dates: start: 20040608, end: 20040608
  4. MELPHALAN (MELPHALAN) (UNKNOWN) [Suspect]
     Indication: MULTIPLE MYELOMA
     Dosage: 332 MG, QD, INTRAVENOUS
     Route: 042
     Dates: start: 20040817, end: 20040817
  5. BORTEZOMIB (BORTEZOMIB) [Suspect]
     Indication: MULTIPLE MYELOMA
     Dosage: 1.7 MG, INTRAVENOUS
     Route: 042
     Dates: start: 20040324
  6. BORTEZOMIB (BORTEZOMIB) [Suspect]
     Indication: MULTIPLE MYELOMA
     Dosage: 1.7 MG, INTRAVENOUS
     Route: 042
     Dates: start: 20040327
  7. BORTEZOMIB (BORTEZOMIB) [Suspect]
     Indication: MULTIPLE MYELOMA
     Dosage: 1.7 MG, INTRAVENOUS
     Route: 042
     Dates: start: 20040331
  8. BORTEZOMIB (BORTEZOMIB) [Suspect]
     Indication: MULTIPLE MYELOMA
     Dosage: 1.7 MG, INTRAVENOUS
     Route: 042
     Dates: start: 20040429
  9. CISPLATIN [Suspect]
     Indication: MULTIPLE MYELOMA
     Dosage: 20 MG, DAILY, INTRAVENOUS
     Route: 042
     Dates: start: 20040327, end: 20040330
  10. CISPLATIN [Suspect]
     Indication: MULTIPLE MYELOMA
     Dosage: 20 MG, DAILY, INTRAVENOUS
     Route: 042
     Dates: start: 20040403, end: 20040406
  11. CISPLATIN [Suspect]
     Indication: MULTIPLE MYELOMA
     Dosage: 20 MG, DAILY, INTRAVENOUS
     Route: 042
     Dates: start: 20040429
  12. ADRIAMYCIN PFS [Suspect]
     Indication: MULTIPLE MYELOMA
     Dosage: 20 MG, DAILY, INTRAVENOUS
     Route: 042
     Dates: start: 20040327, end: 20040330
  13. ADRIAMYCIN PFS [Suspect]
     Indication: MULTIPLE MYELOMA
     Dosage: 20 MG, DAILY, INTRAVENOUS
     Route: 042
     Dates: start: 20040403, end: 20040406
  14. ADRIAMYCIN PFS [Suspect]
     Indication: MULTIPLE MYELOMA
     Dosage: 20 MG, DAILY, INTRAVENOUS
     Route: 042
     Dates: start: 20040429
  15. CYCLOPHOSPHAMIDE [Suspect]
     Indication: MULTIPLE MYELOMA
     Dosage: 800 MG, DAILY, INTRAVENOUS
     Route: 042
     Dates: start: 20040327, end: 20040330
  16. CYCLOPHOSPHAMIDE [Suspect]
     Indication: MULTIPLE MYELOMA
     Dosage: 800 MG, DAILY, INTRAVENOUS
     Route: 042
     Dates: start: 20040403, end: 20040406
  17. CYCLOPHOSPHAMIDE [Suspect]
     Indication: MULTIPLE MYELOMA
     Dosage: 800 MG, DAILY, INTRAVENOUS
     Route: 042
     Dates: start: 20040429
  18. ETOPOSIDE [Suspect]
     Indication: MULTIPLE MYELOMA
     Dosage: 80 MG, DAILY, INTRAVENOUS
     Route: 042
     Dates: start: 20040327, end: 20040330
  19. ETOPOSIDE [Suspect]
     Indication: MULTIPLE MYELOMA
     Dosage: 80 MG, DAILY, INTRAVENOUS
     Route: 042
     Dates: start: 20040403, end: 20040406
  20. ETOPOSIDE [Suspect]
     Indication: MULTIPLE MYELOMA
     Dosage: 80 MG, DAILY, INTRAVENOUS
     Route: 042
     Dates: start: 20040429
  21. ACYCLOVIR [Concomitant]
  22. ZYRTEC [Concomitant]
  23. KLONOPIN [Concomitant]
  24. AMBIEN [Concomitant]
  25. ZANTAC [Concomitant]
  26. PROCRIT [Concomitant]
  27. EFFEXOR XR [Concomitant]
  28. CARDIZEM [Concomitant]
  29. NASONEX (MOMETASONE FUORATE) [Concomitant]
  30. CARDURA [Concomitant]
  31. LEVAQUIN [Concomitant]
  32. TEQUIN [Concomitant]
  33. DIFLUCAN [Concomitant]
  34. RANITIDINE [Concomitant]
  35. LOVENOX [Concomitant]

REACTIONS (23)
  - ANOREXIA [None]
  - ATELECTASIS [None]
  - BLOOD ALBUMIN DECREASED [None]
  - CLOSTRIDIUM COLITIS [None]
  - DEPRESSION [None]
  - FLUID OVERLOAD [None]
  - HAEMATOCRIT DECREASED [None]
  - HAEMOGLOBIN DECREASED [None]
  - HYPOTENSION [None]
  - ILEUS [None]
  - INAPPROPRIATE ANTIDIURETIC HORMONE SECRETION [None]
  - LIVER FUNCTION TEST ABNORMAL [None]
  - LOBAR PNEUMONIA [None]
  - MALNUTRITION [None]
  - ORTHOSTATIC HYPOTENSION [None]
  - PLEURAL EFFUSION [None]
  - PNEUMONIA [None]
  - RENAL FAILURE ACUTE [None]
  - RESPIRATORY TRACT INFECTION [None]
  - SINUSITIS [None]
  - STEM CELL TRANSPLANT [None]
  - TACHYCARDIA [None]
  - X-RAY GASTROINTESTINAL TRACT ABNORMAL [None]
